FAERS Safety Report 7594285-0 (Version None)
Quarter: 2011Q3

REPORT INFORMATION
  Report Type: 
  Country: None (occurrence: None)
  Receive Date: 20110706
  Receipt Date: 20110627
  Transmission Date: 20111222
  Serious: Yes (Hospitalization)
  Sender: FDA-Public Use
  Company Number: FR-ASTRAZENECA-2011SE33939

PATIENT
  Age: 32534 Day
  Sex: Female

DRUGS (8)
  1. PYOSTACINE [Suspect]
     Indication: LUNG DISORDER
     Route: 048
     Dates: start: 20110303, end: 20110311
  2. LASIX [Suspect]
     Indication: HYPERTENSION
     Route: 048
     Dates: start: 20110220, end: 20110323
  3. PULMICORT [Suspect]
     Indication: CHRONIC OBSTRUCTIVE PULMONARY DISEASE
     Route: 055
     Dates: start: 20110215, end: 20110312
  4. IPRATROPIUM BROMIDE [Suspect]
     Indication: CHRONIC OBSTRUCTIVE PULMONARY DISEASE
     Route: 055
     Dates: start: 20110215, end: 20110312
  5. ALBUTEROL [Suspect]
     Indication: CHRONIC OBSTRUCTIVE PULMONARY DISEASE
     Route: 055
     Dates: start: 20110215, end: 20110312
  6. VENLAFAXINE [Suspect]
     Route: 048
     Dates: start: 20110215
  7. PRIMPERAN TAB [Suspect]
     Indication: NAUSEA
     Dosage: ONE COFFEE SPOON THREE TIMES A DAY
     Route: 048
     Dates: start: 20110306, end: 20110310
  8. CALCIPARINE [Suspect]
     Route: 058
     Dates: start: 20110215, end: 20110323

REACTIONS (1)
  - AGRANULOCYTOSIS [None]
